FAERS Safety Report 5899577-9 (Version None)
Quarter: 2008Q3

REPORT INFORMATION
  Report Type: 
  Country: None (occurrence: None)
  Receive Date: 20080926
  Receipt Date: 20080919
  Transmission Date: 20090109
  Serious: Yes (Other)
  Sender: FDA-Public Use
  Company Number: PHEH2008US08185

PATIENT
  Sex: Female
  Weight: 82.54 kg

DRUGS (9)
  1. VIVELLE-DOT [Suspect]
     Indication: HORMONE REPLACEMENT THERAPY
     Dosage: .05 MG BIW
     Route: 061
     Dates: start: 20080816
  2. VIVELLE-DOT [Suspect]
     Dosage: 0.1 MG EVERY 2 WEEKS
     Route: 061
     Dates: start: 20080829
  3. VIVELLE-DOT [Suspect]
     Dosage: 0.05 MG, BIW
  4. PLAQUENIL [Concomitant]
     Indication: RHEUMATOID ARTHRITIS
     Dosage: 200 UNK, BID
  5. CYMBALTA [Concomitant]
     Indication: DEPRESSION
     Dosage: 60 UNK, QD
  6. DIAMOX                                  /CAN/ [Concomitant]
     Indication: MENIERE'S DISEASE
     Dosage: 250 MG, QD
  7. MINOCYCLINE HCL [Concomitant]
  8. HERBAL PREPARATION [Concomitant]
  9. ANALGESICS [Concomitant]

REACTIONS (7)
  - CONDITION AGGRAVATED [None]
  - FEELING JITTERY [None]
  - HEADACHE [None]
  - MIGRAINE [None]
  - PANIC DISORDER [None]
  - POST PROCEDURAL HAEMORRHAGE [None]
  - VENTRICULAR EXTRASYSTOLES [None]
